FAERS Safety Report 6147780-5 (Version None)
Quarter: 2009Q2

REPORT INFORMATION
  Report Type: 
  Country: None (occurrence: None)
  Receive Date: 20090408
  Receipt Date: 20090402
  Transmission Date: 20091009
  Serious: Yes (Hospitalization)
  Sender: FDA-Public Use
  Company Number: TH-AVENTIS-200911845GDDC

PATIENT
  Sex: Male

DRUGS (4)
  1. LANTUS [Suspect]
     Route: 058
  2. DIAMICRON [Suspect]
     Route: 048
  3. GLUCOBAY [Suspect]
     Route: 048
  4. GLUCOPHAGE [Suspect]

REACTIONS (5)
  - HEPATIC CIRRHOSIS [None]
  - HYPOGLYCAEMIA [None]
  - PYREXIA [None]
  - THROMBOCYTOPENIA [None]
  - UROSEPSIS [None]
